FAERS Safety Report 4821988-0 (Version None)
Quarter: 2005Q4

REPORT INFORMATION
  Report Type: 
  Country: None (occurrence: None)
  Receive Date: 20051103
  Receipt Date: 20051026
  Transmission Date: 20060501
  Serious: Yes (Hospitalization, Other)
  Sender: FDA-Public Use
  Company Number: 8013007

PATIENT
  Age: 11 Year
  Sex: Male
  Weight: 66 kg

DRUGS (2)
  1. EQUASYM [Suspect]
     Dosage: 220 MG ONE PO
     Route: 048
     Dates: start: 20051026, end: 20051026
  2. EQUASYM [Suspect]
     Dosage: 54 MG PO
     Route: 048

REACTIONS (1)
  - OVERDOSE [None]
